FAERS Safety Report 23548233 (Version 1)
Quarter: 2024Q1

REPORT INFORMATION
  Report Type: Spontaneous
  Country: IT (occurrence: IT)
  Receive Date: 20240221
  Receipt Date: 20240221
  Transmission Date: 20240409
  Serious: Yes (Hospitalization)
  Sender: FDA-Public Use
  Company Number: None

PATIENT
  Age: 45 Year
  Sex: Male

DRUGS (3)
  1. DICLOFENAC [Suspect]
     Active Substance: DICLOFENAC
     Indication: Intentional self-injury
     Dosage: 50 MG
     Route: 048
     Dates: start: 20240209, end: 20240209
  2. BUTYLSCOPOLAMINE BROMIDE [Suspect]
     Active Substance: BUTYLSCOPOLAMINE BROMIDE
     Indication: Intentional self-injury
     Dosage: 10 MG
     Route: 048
     Dates: start: 20240209, end: 20240209
  3. TROSPIUM CHLORIDE [Suspect]
     Active Substance: TROSPIUM CHLORIDE
     Indication: Intentional self-injury
     Dosage: 80 MG
     Route: 048
     Dates: start: 20240209, end: 20240209

REACTIONS (2)
  - Abdominal pain upper [Recovering/Resolving]
  - Drug abuse [Recovering/Resolving]

NARRATIVE: CASE EVENT DATE: 20240209
